FAERS Safety Report 21520243 (Version 2)
Quarter: 2022Q4

REPORT INFORMATION
  Report Type: Spontaneous
  Country: US (occurrence: US)
  Receive Date: 20221028
  Receipt Date: 20221222
  Transmission Date: 20230113
  Serious: No
  Sender: FDA-Public Use
  Company Number: US-PFIZER INC-PV202200090984

PATIENT
  Age: 47 Year
  Sex: Female

DRUGS (1)
  1. XELJANZ [Suspect]
     Active Substance: TOFACITINIB CITRATE
     Indication: Rheumatoid arthritis
     Dosage: 5 MG, 2X/DAY
     Route: 048
     Dates: start: 20220907, end: 20221208

REACTIONS (11)
  - Condition aggravated [Unknown]
  - Product dose omission issue [Unknown]
  - Depressed mood [Unknown]
  - Fatigue [Unknown]
  - Asthenia [Unknown]
  - Somnolence [Unknown]
  - Cold sweat [Unknown]
  - Acne [Unknown]
  - Nodule [Unknown]
  - Motor dysfunction [Unknown]
  - Joint stiffness [Unknown]

NARRATIVE: CASE EVENT DATE: 20220101
